FAERS Safety Report 4433078-X (Version None)
Quarter: 2004Q3

REPORT INFORMATION
  Report Type: 
  Country: None (occurrence: None)
  Receive Date: 20040823
  Receipt Date: 20040813
  Transmission Date: 20050211
  Serious: Yes (Other)
  Sender: FDA-Public Use
  Company Number: 208293

PATIENT
  Age: 56 Year
  Sex: Female
  Weight: 86.2 kg

DRUGS (5)
  1. XOLAIR [Suspect]
     Indication: ASTHMA
     Dosage: 150 MG, 1/MONTH, SUBCUTANEOUS
     Route: 058
     Dates: start: 20040802, end: 20040802
  2. FLOVENT [Concomitant]
  3. SEREVENT DISKUS (SALMETEROL XINAFOATE) [Concomitant]
  4. SINGULAIR [Concomitant]
  5. PROVENTIL (ALBUTEROL, ALBUTEROL SULFATE) [Concomitant]

REACTIONS (1)
  - ANAPHYLACTIC REACTION [None]
